FAERS Safety Report 6149906-6 (Version None)
Quarter: 2009Q2

REPORT INFORMATION
  Report Type: 
  Country: None (occurrence: None)
  Receive Date: 20090407
  Receipt Date: 20090402
  Transmission Date: 20091009
  Serious: Yes (Other)
  Sender: FDA-Public Use
  Company Number: CHPA2009US08374

PATIENT
  Age: 21 Year
  Sex: Female
  Weight: 56.7 kg

DRUGS (2)
  1. NICOTINE [Suspect]
     Indication: SMOKING CESSATION THERAPY
     Dosage: 21 MG, QD, TRANSDERMAL
     Route: 062
     Dates: start: 20090329, end: 20090402
  2. THRIVE 4 MG (NICOTINE) CHEWABLE GUM [Suspect]
     Indication: SMOKING CESSATION THERAPY
     Dosage: 4 MG, PRN 4-5 GUMS DAILY
     Dates: start: 20090329, end: 20090402

REACTIONS (8)
  - CHEST PAIN [None]
  - DIARRHOEA [None]
  - DIZZINESS [None]
  - FATIGUE [None]
  - INCORRECT DOSE ADMINISTERED [None]
  - OVERDOSE [None]
  - SYNCOPE [None]
  - TREATMENT NONCOMPLIANCE [None]
